FAERS Safety Report 4356691-7 (Version None)
Quarter: 2004Q2

REPORT INFORMATION
  Report Type: 
  Country: None (occurrence: None)
  Receive Date: 20040507
  Receipt Date: 20040416
  Transmission Date: 20050107
  Serious: Yes (Death)
  Sender: FDA-Public Use
  Company Number: USA040465474

PATIENT
  Age: 45 Year
  Sex: Female

DRUGS (1)
  1. SYMBYAX [Suspect]
     Dates: start: 20040301

REACTIONS (1)
  - COMPLETED SUICIDE [None]
